FAERS Safety Report 4653783-X (Version None)
Quarter: 2005Q2

REPORT INFORMATION
  Report Type: 
  Country: None (occurrence: None)
  Receive Date: 20050504
  Receipt Date: 20050426
  Transmission Date: 20051028
  Serious: Yes (Death, Other)
  Sender: FDA-Public Use
  Company Number: 2003US005460

PATIENT
  Age: 39 Year
  Sex: Male

DRUGS (1)
  1. PROTOPIC [Suspect]
     Indication: VITILIGO
     Dosage: TOPICAL
     Route: 061
     Dates: start: 20030306

REACTIONS (6)
  - BRAIN NEOPLASM [None]
  - LEUKODERMA [None]
  - LYMPHADENOPATHY [None]
  - MALIGNANT MELANOMA STAGE IV [None]
  - MALIGNANT NEOPLASM PROGRESSION [None]
  - METASTATIC MALIGNANT MELANOMA [None]
